FAERS Safety Report 14235508 (Version 1)
Quarter: 2017Q4

REPORT INFORMATION
  Report Type: Spontaneous
  Country: RU (occurrence: RU)
  Receive Date: 20171129
  Receipt Date: 20171129
  Transmission Date: 20180321
  Serious: Yes (Hospitalization, Other)
  Sender: FDA-Public Use
  Company Number: RU-ASTRAZENECA-2017SF20410

PATIENT
  Age: 21897 Day
  Sex: Male
  Weight: 75 kg

DRUGS (4)
  1. LORISTA [Concomitant]
     Active Substance: LOSARTAN POTASSIUM
  2. CONCOR [Concomitant]
     Active Substance: BISOPROLOL FUMARATE
  3. BRILINTA [Suspect]
     Active Substance: TICAGRELOR
     Indication: MYOCARDIAL INFARCTION
     Dosage: 90.0MG UNKNOWN
     Route: 048
     Dates: start: 201705
  4. CARDIOMAGNYL [Concomitant]
     Active Substance: ASPIRIN\MAGNESIUM HYDROXIDE

REACTIONS (2)
  - Off label use [Unknown]
  - Erosive duodenitis [Recovered/Resolved]

NARRATIVE: CASE EVENT DATE: 20171016
